FAERS Safety Report 25739184 (Version 1)
Quarter: 2025Q3

REPORT INFORMATION
  Report Type: Spontaneous
  Country: US (occurrence: US)
  Receive Date: 20250829
  Receipt Date: 20250829
  Transmission Date: 20251020
  Serious: No
  Sender: CIPLA
  Company Number: US-CIPLA LTD.-2024US14593

PATIENT

DRUGS (2)
  1. ALENDRONATE [Suspect]
     Active Substance: ALENDRONATE SODIUM
     Indication: Osteoporosis
     Route: 048
     Dates: start: 202411
  2. ALENDRONATE [Suspect]
     Active Substance: ALENDRONATE SODIUM
     Route: 048
     Dates: start: 202411

REACTIONS (4)
  - Abdominal discomfort [Recovered/Resolved]
  - Discomfort [Recovered/Resolved]
  - Wrong technique in product usage process [Unknown]
  - Dyspepsia [Recovered/Resolved]

NARRATIVE: CASE EVENT DATE: 20241101
